FAERS Safety Report 7313337-3 (Version None)
Quarter: 2011Q1

REPORT INFORMATION
  Report Type: 
  Country: None (occurrence: None)
  Receive Date: 20110225
  Receipt Date: 20110214
  Transmission Date: 20110831
  Serious: Yes (Hospitalization)
  Sender: FDA-Public Use
  Company Number: CA-ELI_LILLY_AND_COMPANY-CA201102004057

PATIENT
  Age: 81 Year
  Sex: Female

DRUGS (24)
  1. PLAVIX [Concomitant]
  2. OXYBUTYNIN [Concomitant]
  3. CIALIS [Concomitant]
  4. HYDROCHLOROTHIAZIDE [Concomitant]
  5. PREDNISONE [Concomitant]
  6. RAMIPRIL [Concomitant]
  7. MICARDIS [Concomitant]
  8. LYRICA [Concomitant]
  9. FORTEO [Suspect]
     Indication: OSTEOPOROSIS
     Dosage: 20 UG, DAILY (1/D)
     Route: 058
     Dates: start: 20090331, end: 20101208
  10. PRENATAL VITAMINS [Concomitant]
  11. CELEBREX [Concomitant]
  12. RABEPRAZOLE SODIUM [Concomitant]
  13. SLOW-K [Concomitant]
  14. VITAMIN B-12 [Concomitant]
  15. ROCALTROL [Concomitant]
  16. VITAMIN D [Concomitant]
  17. COLACE [Concomitant]
  18. CALCIUM CITRATE [Concomitant]
  19. DILANTIN [Concomitant]
  20. AMLODIPINE [Concomitant]
  21. CYMBALTA [Concomitant]
  22. ELTROXIN [Concomitant]
  23. LIPITOR [Concomitant]
  24. METOPROLOL SUCCINATE [Concomitant]

REACTIONS (2)
  - BLOOD CALCIUM INCREASED [None]
  - HOSPITALISATION [None]
